FAERS Safety Report 14343211 (Version 2)
Quarter: 2018Q2

REPORT INFORMATION
  Report Type: Spontaneous
  Country: FR (occurrence: FR)
  Receive Date: 20180102
  Receipt Date: 20180430
  Transmission Date: 20180711
  Serious: Yes (Death, Life-Threatening)
  Sender: FDA-Public Use
  Company Number: FR-JNJFOC-20171235345

PATIENT
  Age: 20 Year
  Sex: Female
  Weight: 64 kg

DRUGS (1)
  1. XEPLION [Suspect]
     Active Substance: PALIPERIDONE PALMITATE
     Indication: BIPOLAR DISORDER
     Route: 030
     Dates: start: 201708, end: 201711

REACTIONS (5)
  - Congestive cardiomyopathy [Fatal]
  - Off label use [Unknown]
  - Cardiac failure [Fatal]
  - Product use in unapproved indication [Unknown]
  - Ejection fraction decreased [Fatal]

NARRATIVE: CASE EVENT DATE: 201708
